FAERS Safety Report 5720275-6 (Version None)
Quarter: 2008Q2

REPORT INFORMATION
  Report Type: 
  Country: None (occurrence: None)
  Receive Date: 20080428
  Receipt Date: 20080416
  Transmission Date: 20081010
  Serious: Yes (Other)
  Sender: FDA-Public Use
  Company Number: US-PFIZER INC-2008014099

PATIENT
  Sex: Male
  Weight: 81.6 kg

DRUGS (2)
  1. CHANTIX [Suspect]
     Indication: SMOKING CESSATION THERAPY
     Route: 048
     Dates: start: 20080101, end: 20080204
  2. ALCOHOL [Interacting]
     Indication: SOCIAL ALCOHOL DRINKER

REACTIONS (8)
  - AGGRESSION [None]
  - AGITATION [None]
  - AMNESIA [None]
  - ANGER [None]
  - BACK PAIN [None]
  - FLATULENCE [None]
  - HOSTILITY [None]
  - SCREAMING [None]
